FAERS Safety Report 10058282 (Version 1)
Quarter: 2014Q2

REPORT INFORMATION
  Report Type: Spontaneous
  Country: US (occurrence: US)
  Receive Date: 20140404
  Receipt Date: 20140404
  Transmission Date: 20141212
  Serious: Yes (Other)
  Sender: FDA-Public Use
  Company Number: US-ASTRAZENECA-2014SE22616

PATIENT
  Age: 64 Year
  Sex: Male
  Weight: 104.3 kg

DRUGS (11)
  1. SEROQUEL XR [Suspect]
     Indication: DEPRESSION
     Route: 048
     Dates: start: 201205, end: 201211
  2. SEROQUEL XR [Suspect]
     Indication: DEPRESSION
     Route: 048
     Dates: start: 201211, end: 201403
  3. OMEPRAZOLE [Suspect]
     Indication: GASTROOESOPHAGEAL REFLUX DISEASE
     Dosage: 20 DAILY
     Route: 048
  4. PRISTIQ [Suspect]
     Indication: DEPRESSION
     Route: 048
     Dates: start: 201205
  5. PRISTIQ [Suspect]
     Indication: DEPRESSION
     Dosage: 100 MG EVERY MORNING AND 50 MG AT NIGHT
     Route: 048
     Dates: start: 201211
  6. MULTIVITAMIN [Concomitant]
     Indication: VITAMIN SUPPLEMENTATION
     Dosage: 1 DAILY
     Route: 048
  7. VITAMIN D 3 [Concomitant]
     Indication: VITAMIN SUPPLEMENTATION
     Dosage: 1 DAILY
     Route: 048
  8. AMLODIPINE-ATORVASTATIN [Concomitant]
     Indication: BLOOD PRESSURE ABNORMAL
     Dosage: 10-80 DAILY
     Route: 048
     Dates: start: 2007
  9. AMLODIPINE-ATORVASTATIN [Concomitant]
     Indication: BLOOD CHOLESTEROL ABNORMAL
     Dosage: 10-80 DAILY
     Route: 048
     Dates: start: 2007
  10. TAMSULOSIN [Concomitant]
     Indication: DYSURIA
     Route: 048
     Dates: start: 2008
  11. CLONAZEPAM [Concomitant]
     Indication: PSYCHOTIC DISORDER
     Dosage: 1 MG BID PRN
     Route: 048
     Dates: start: 2012

REACTIONS (15)
  - Accident [Unknown]
  - Road traffic accident [Unknown]
  - Hypotension [Unknown]
  - Dyspnoea [Unknown]
  - Heart rate increased [Recovered/Resolved with Sequelae]
  - Depression [Unknown]
  - Anxiety [Unknown]
  - Insomnia [Unknown]
  - Crying [Unknown]
  - Drug intolerance [Unknown]
  - Agitation [Unknown]
  - Somnolence [Unknown]
  - Drug withdrawal syndrome [Unknown]
  - Intentional product misuse [Unknown]
  - Drug ineffective [Unknown]
